FAERS Safety Report 13910079 (Version 1)
Quarter: 2017Q3

REPORT INFORMATION
  Report Type: Spontaneous
  Country: US (occurrence: US)
  Receive Date: 20170828
  Receipt Date: 20170828
  Transmission Date: 20171127
  Serious: No
  Sender: FDA-Public Use
  Company Number: US-BAYER-2017-158277

PATIENT
  Age: 59 Year
  Sex: Female
  Weight: 79 kg

DRUGS (2)
  1. CLARITIN [Suspect]
     Active Substance: LORATADINE
     Indication: SINUS DISORDER
  2. CLARITIN [Suspect]
     Active Substance: LORATADINE
     Indication: PAIN
     Dosage: 1 DF, UNK
     Route: 048
     Dates: start: 20170714

REACTIONS (4)
  - Off label use [Unknown]
  - Expired product administered [None]
  - Product use in unapproved indication [Unknown]
  - Product use in unapproved indication [Unknown]

NARRATIVE: CASE EVENT DATE: 201708
